FAERS Safety Report 4317751-X (Version None)
Quarter: 2004Q1

REPORT INFORMATION
  Report Type: 
  Country: None (occurrence: None)
  Receive Date: 20040315
  Receipt Date: 20040303
  Transmission Date: 20041129
  Serious: Yes (Death, Hospitalization)
  Sender: FDA-Public Use
  Company Number: FR-BRISTOL-MYERS SQUIBB COMPANY-12528634

PATIENT
  Age: 42 Year
  Sex: Male

DRUGS (7)
  1. METFORMIN HCL [Suspect]
  2. INSULIN [Concomitant]
  3. CLARITHROMYCIN [Concomitant]
  4. DOMPERIDONE [Concomitant]
  5. IBUPROFEN [Concomitant]
  6. BUFLOMEDIL [Concomitant]
  7. TIAPROFENIC ACID [Concomitant]

REACTIONS (14)
  - ACUTE RESPIRATORY DISTRESS SYNDROME [None]
  - ANURIA [None]
  - BRADYCARDIA [None]
  - COMPLETED SUICIDE [None]
  - CONFUSIONAL STATE [None]
  - GASTRIC ULCER [None]
  - GASTRITIS [None]
  - HYPOTHERMIA [None]
  - INTENTIONAL OVERDOSE [None]
  - LACTIC ACIDOSIS [None]
  - OESOPHAGITIS [None]
  - OLIGURIA [None]
  - SHOCK [None]
  - URINE KETONE BODY PRESENT [None]
